FAERS Safety Report 8850974 (Version 2)
Quarter: 2012Q4

REPORT INFORMATION
  Report Type: 
  Country: FI (occurrence: FI)
  Receive Date: 20121019
  Receipt Date: 20121226
  Transmission Date: 20130627
  Serious: Yes (Hospitalization)
  Sender: FDA-Public Use
  Company Number: FI-JNJFOC-20121006539

PATIENT
  Age: 17 None
  Sex: Female

DRUGS (10)
  1. REMICADE [Suspect]
     Indication: RHEUMATOID ARTHRITIS
     Route: 042
     Dates: end: 201208
  2. REMICADE [Suspect]
     Indication: RHEUMATOID ARTHRITIS
     Dosage: received for 3 times
     Route: 042
     Dates: start: 201202, end: 20120508
  3. ARAVA [Concomitant]
     Route: 048
     Dates: end: 20120801
  4. KALCIPOS D [Concomitant]
     Route: 048
  5. PREDNISOLON [Concomitant]
     Route: 048
  6. BURANA [Concomitant]
     Route: 048
  7. AERIUS [Concomitant]
     Route: 048
  8. OFTAN DEXA [Concomitant]
     Route: 047
  9. PRED FORTE [Concomitant]
     Route: 047
  10. HYDROCORTISONE [Concomitant]
     Route: 003

REACTIONS (2)
  - Systemic lupus erythematosus [Recovering/Resolving]
  - Autoimmune hepatitis [Recovering/Resolving]
